FAERS Safety Report 12632605 (Version 2)
Quarter: 2016Q3

REPORT INFORMATION
  Report Type: Spontaneous
  Country: US (occurrence: US)
  Receive Date: 20160808
  Receipt Date: 20160808
  Transmission Date: 20161109
  Serious: No
  Sender: FDA-Public Use
  Company Number: US-BEH-2015056205

PATIENT
  Sex: Female
  Weight: 69 kg

DRUGS (33)
  1. LUNESTA [Concomitant]
     Active Substance: ESZOPICLONE
  2. VITAMIN D3 [Concomitant]
     Active Substance: CHOLECALCIFEROL
  3. VALTREX [Concomitant]
     Active Substance: VALACYCLOVIR HYDROCHLORIDE
  4. TUSSIN COUGH SYRUP [Concomitant]
  5. PATADAY [Concomitant]
     Active Substance: OLOPATADINE HYDROCHLORIDE
  6. TRIAMCINOLONE [Concomitant]
     Active Substance: TRIAMCINOLONE
  7. BENZOYL PEROXIDE WASH [Concomitant]
     Active Substance: BENZOYL PEROXIDE
  8. SILVER SULFADIAZINE. [Concomitant]
     Active Substance: SILVER SULFADIAZINE
  9. ADVAIR HFA [Concomitant]
     Active Substance: FLUTICASONE PROPIONATE\SALMETEROL XINAFOATE
  10. DESONIDE. [Concomitant]
     Active Substance: DESONIDE
  11. BACTROBAN [Concomitant]
     Active Substance: MUPIROCIN\MUPIROCIN CALCIUM
     Route: 045
  12. XOPENEX [Concomitant]
     Active Substance: LEVALBUTEROL HYDROCHLORIDE
  13. HIZENTRA [Suspect]
     Active Substance: HUMAN IMMUNOGLOBULIN G
     Indication: HYPOGAMMAGLOBULINAEMIA
     Route: 058
  14. MEGA MULTIVITAMIN-MINERAL [Concomitant]
  15. DIPHENHYDRAMINE. [Concomitant]
     Active Substance: DIPHENHYDRAMINE
  16. DOCUSATE SODIUM. [Concomitant]
     Active Substance: DOCUSATE SODIUM
  17. MIRALAX [Concomitant]
     Active Substance: POLYETHYLENE GLYCOL 3350
  18. PREDNISONE. [Concomitant]
     Active Substance: PREDNISONE
  19. CIPROFLOXACIN. [Concomitant]
     Active Substance: CIPROFLOXACIN
  20. ZETIA [Concomitant]
     Active Substance: EZETIMIBE
  21. RESORCINOL [Concomitant]
     Active Substance: RESORCINOL
  22. TYLENOL EX-STR [Concomitant]
  23. FLUOCINONIDE. [Concomitant]
     Active Substance: FLUOCINONIDE
  24. VALACICLOVIR [Concomitant]
     Active Substance: VALACYCLOVIR HYDROCHLORIDE
  25. EPIPEN [Concomitant]
     Active Substance: EPINEPHRINE
  26. L-M-X [Concomitant]
  27. FLUTICASONE PROP [Concomitant]
  28. GLYCERIN SUPPOS [Concomitant]
  29. DENAVIR [Concomitant]
     Active Substance: PENCICLOVIR
  30. CLINDAMYCIN PHOSP [Concomitant]
     Route: 061
  31. FLUBLOK [Concomitant]
     Active Substance: INFLUENZA A VIRUS A/CALIFORNIA/7/2009 (H1N1) RECOMBINANT HEMAGGLUTININ ANTIGEN\INFLUENZA A VIRUS A/VICTORIA/361/2011 (H3N2) RECOMBINANT HEMAGGLUTININ ANTIGEN\INFLUENZA B VIRUS B/WISCONSIN/1/2010 RECOMBINANT HEMAGGLUTININ ANTIGEN
  32. PEG-3350 AND ELECTROLYTES [Concomitant]
     Active Substance: POLYETHYLENE GLYCOL 3350\POTASSIUM CHLORIDE\SODIUM BICARBONATE\SODIUM CHLORIDE\SODIUM SULFATE\SODIUM SULFATE ANHYDROUS
  33. METAMUCIL [Concomitant]
     Active Substance: PLANTAGO SEED

REACTIONS (2)
  - Oropharyngeal pain [Unknown]
  - Lymphadenopathy [Unknown]
